FAERS Safety Report 11779305 (Version 1)
Quarter: 2015Q4

REPORT INFORMATION
  Report Type: Spontaneous
  Country: TR (occurrence: TR)
  Receive Date: 20151125
  Receipt Date: 20151125
  Transmission Date: 20160304
  Serious: Yes (Other)
  Sender: FDA-Public Use
  Company Number: TR-PRINSTON PHARMACEUTICAL INC.-2015PRN00133

PATIENT
  Age: 13 Year
  Sex: Female

DRUGS (2)
  1. LEVETIRACETAM. [Suspect]
     Active Substance: LEVETIRACETAM
     Dosage: 20 MG/KG, 1X/DAY
  2. LEVETIRACETAM. [Suspect]
     Active Substance: LEVETIRACETAM
     Indication: BENIGN ROLANDIC EPILEPSY
     Dosage: 10 MG/KG, 1X/DAY

REACTIONS (1)
  - Rhabdomyolysis [Recovered/Resolved]
